FAERS Safety Report 5802887-4 (Version None)
Quarter: 2008Q2

REPORT INFORMATION
  Report Type: 
  Country: None (occurrence: None)
  Receive Date: 20080627
  Receipt Date: 20080118
  Transmission Date: 20081010
  Serious: Yes (Other)
  Sender: FDA-Public Use
  Company Number: 542593

PATIENT
  Age: 58 Year
  Sex: Male

DRUGS (2)
  1. INTERFERON ALFA [Suspect]
     Indication: MALIGNANT MELANOMA
     Dosage: 20 MILLIONIU 5 PER 1 WEEK
  2. INTERFERON ALFA [Suspect]
     Indication: MUSCLE DISORDER
     Dosage: 20 MILLIONIU 5 PER 1 WEEK

REACTIONS (1)
  - RETINAL ISCHAEMIA [None]
